FAERS Safety Report 10643825 (Version 1)
Quarter: 2014Q4

REPORT INFORMATION
  Report Type: Spontaneous
  Country: US (occurrence: US)
  Receive Date: 20141210
  Receipt Date: 20141210
  Transmission Date: 20150529
  Serious: Yes (Other)
  Sender: FDA-Public Use
  Company Number: US-BAYER-2014-179047

PATIENT
  Age: 79 Year
  Sex: Male
  Weight: 93.42 kg

DRUGS (2)
  1. BAYER GENUINE ASPIRIN [Suspect]
     Active Substance: ASPIRIN
     Indication: ANTICOAGULANT THERAPY
     Dosage: 1 DF, QD
     Route: 048
     Dates: end: 201409
  2. BAYER LOW DOSE [Suspect]
     Active Substance: ASPIRIN
     Indication: ANTICOAGULANT THERAPY
     Dosage: 1 DF, QD
     Route: 048
     Dates: start: 201411

REACTIONS (2)
  - Off label use [None]
  - Gastric ulcer [Not Recovered/Not Resolved]

NARRATIVE: CASE EVENT DATE: 201408
